FAERS Safety Report 4377762-5 (Version None)
Quarter: 2004Q2

REPORT INFORMATION
  Report Type: 
  Country: None (occurrence: None)
  Receive Date: 20040614
  Receipt Date: 20040614
  Transmission Date: 20050107
  Serious: No
  Sender: FDA-Public Use
  Company Number: None

PATIENT
  Age: 52 Year
  Sex: Female

DRUGS (8)
  1. LISINOPRIL [Suspect]
  2. ATENOLOL [Concomitant]
  3. LORAZEPAM [Concomitant]
  4. VENLAFAXINE HCL [Concomitant]
  5. RANITIDINE HYDROCHLORIDE [Concomitant]
  6. OXYCODONE HCL [Concomitant]
  7. ACETAMINOPHEN/OXYCODONE HYDROCHIORIDE [Concomitant]
  8. BISACODYL [Concomitant]

REACTIONS (1)
  - ANGIONEUROTIC OEDEMA [None]
